FAERS Safety Report 7868128-1 (Version None)
Quarter: 2011Q4

REPORT INFORMATION
  Report Type: 
  Country: None (occurrence: None)
  Receive Date: 20111028
  Receipt Date: 20111014
  Transmission Date: 20120403
  Serious: Yes (Other)
  Sender: FDA-Public Use
  Company Number: MX-ELI_LILLY_AND_COMPANY-MX201110004394

PATIENT
  Age: 6 Year
  Sex: Male

DRUGS (4)
  1. STRATTERA [Suspect]
     Indication: ATTENTION DEFICIT/HYPERACTIVITY DISORDER
     Dosage: 40 MG, UNKNOWN
  2. STRATTERA [Suspect]
     Dosage: 18 MG, UNKNOWN
  3. CYPROHEPTADINE HCL [Concomitant]
     Dosage: UNK
  4. METHYLPHENIDATE [Concomitant]
     Dosage: 36 MG, UNKNOWN

REACTIONS (3)
  - DYSPNOEA [None]
  - CYANOSIS [None]
  - ORTHOPNOEA [None]
